FAERS Safety Report 25796767 (Version 1)
Quarter: 2025Q3

REPORT INFORMATION
  Report Type: Spontaneous
  Country: US (occurrence: US)
  Receive Date: 20250912
  Receipt Date: 20250912
  Transmission Date: 20251020
  Serious: No
  Sender: ANI
  Company Number: US-ANIPHARMA-2025-US-017630

PATIENT
  Age: 63 Year
  Sex: Male

DRUGS (1)
  1. CORTICOTROPIN [Suspect]
     Active Substance: CORTICOTROPIN
     Indication: Sarcoidosis
     Route: 058

REACTIONS (3)
  - Peripheral swelling [Recovering/Resolving]
  - Dyspnoea [Unknown]
  - Contraindicated product administered [Not Recovered/Not Resolved]
